FAERS Safety Report 6146217-X (Version None)
Quarter: 2009Q2

REPORT INFORMATION
  Report Type: 
  Country: None (occurrence: None)
  Receive Date: 20090407
  Receipt Date: 20090402
  Transmission Date: 20091009
  Serious: Yes (Death)
  Sender: FDA-Public Use
  Company Number: PHHY2009GB12602

PATIENT

DRUGS (4)
  1. EXELON [Suspect]
     Indication: VASCULAR DEMENTIA
     Dosage: 3 MG
     Route: 048
  2. EXELON [Suspect]
     Dosage: 6 MG
     Route: 048
  3. EXELON [Suspect]
     Dosage: 9 MG
  4. EXELON [Suspect]
     Dosage: 12 MG
     Route: 048

REACTIONS (1)
  - ASPIRATION [None]
